FAERS Safety Report 9284973 (Version 1)
Quarter: 2013Q2

REPORT INFORMATION
  Report Type: Spontaneous
  Country: US (occurrence: US)
  Receive Date: 20130513
  Receipt Date: 20130513
  Transmission Date: 20140414
  Serious: Yes (Other)
  Sender: FDA-Public Use
  Company Number: PHEH2013US010426

PATIENT
  Sex: Female

DRUGS (9)
  1. DIOVAN [Suspect]
     Dosage: 320 MG, UNK
  2. DIOVAN [Suspect]
     Dosage: 40 MG, UNK
  3. XARELTO [Concomitant]
     Dosage: 20 MG, UNK
  4. COREG [Concomitant]
     Dosage: UNK UKN, UNK
  5. METFORMIN [Concomitant]
     Dosage: 1000 UKN, UNK
  6. TORSEMIDE [Concomitant]
     Dosage: 20 MG, UNK
  7. SPIRONOLACTONE [Concomitant]
     Dosage: 25 MG, UNK
  8. CARVEDILOL [Concomitant]
     Dosage: 12.5 MG, UNK
  9. CRESTOR [Concomitant]
     Dosage: 10 MG, UNK

REACTIONS (1)
  - Thrombosis [Unknown]
